FAERS Safety Report 6773074-0 (Version None)
Quarter: 2010Q2

REPORT INFORMATION
  Report Type: 
  Country: None (occurrence: None)
  Receive Date: 20100616
  Receipt Date: 20100517
  Transmission Date: 20101027
  Serious: Yes (Other)
  Sender: FDA-Public Use
  Company Number: FR-PFIZER INC-2010052926

PATIENT
  Age: 49 Year
  Sex: Female
  Weight: 70 kg

DRUGS (5)
  1. LYRICA [Suspect]
     Indication: POLYNEUROPATHY
     Dosage: 300 MG, 2X/DAY
     Route: 048
     Dates: start: 20091123, end: 20100424
  2. TRAMADOL [Concomitant]
  3. RIVOTRIL [Concomitant]
     Indication: NEURALGIA
     Dosage: 7 DROPS 1 TIME/DAY
     Route: 048
     Dates: start: 20100220
  4. KLIPAL [Concomitant]
     Indication: NEURALGIA
     Dosage: 600 MG, 3X/DAY
     Route: 048
     Dates: start: 20091222
  5. ALDACTONE [Concomitant]
     Indication: OEDEMA PERIPHERAL
     Dosage: 25 MG, 1X/DAY
     Route: 048
     Dates: start: 20100120

REACTIONS (1)
  - DERMATITIS PSORIASIFORM [None]
